FAERS Safety Report 6240942-8 (Version None)
Quarter: 2009Q2

REPORT INFORMATION
  Report Type: 
  Country: None (occurrence: None)
  Receive Date: 20090619
  Receipt Date: 20090604
  Transmission Date: 20091009
  Serious: Yes (Hospitalization)
  Sender: FDA-Public Use
  Company Number: 2008AL012003

PATIENT
  Age: 63 Year
  Sex: Male

DRUGS (7)
  1. DIGOXIN [Suspect]
     Indication: CARDIAC DISORDER
     Dosage: 0.125MG, DAILY, PO
     Route: 048
     Dates: start: 20080301, end: 20080501
  2. FOLIC ACID [Concomitant]
  3. LACTULOSE [Concomitant]
  4. METOPROLOL SUCCINATE [Concomitant]
  5. MICONAZOLE [Concomitant]
  6. ASPIRIN [Concomitant]
  7. CAPTOPRIL [Concomitant]

REACTIONS (9)
  - ATRIAL FLUTTER [None]
  - CHEST PAIN [None]
  - COUGH [None]
  - DELIRIUM [None]
  - DIZZINESS [None]
  - ECONOMIC PROBLEM [None]
  - HYPONATRAEMIA [None]
  - INJURY [None]
  - SICK SINUS SYNDROME [None]
